FAERS Safety Report 8522196-2 (Version None)
Quarter: 2012Q3

REPORT INFORMATION
  Report Type: 
  Country: None (occurrence: None)
  Receive Date: 20120719
  Receipt Date: 20120717
  Transmission Date: 20120928
  Serious: Yes (Death, Other)
  Sender: FDA-Public Use
  Company Number: BR-ABBOTT-12P-020-0957298-00

PATIENT
  Sex: Female

DRUGS (1)
  1. HUMIRA [Suspect]
     Indication: PSORIASIS
     Route: 058
     Dates: start: 20120323

REACTIONS (5)
  - DEATH [None]
  - CONDITION AGGRAVATED [None]
  - BLOOD TRIGLYCERIDES INCREASED [None]
  - ANAEMIA [None]
  - BLOOD CHOLESTEROL INCREASED [None]
